FAERS Safety Report 6636562-3 (Version None)
Quarter: 2010Q1

REPORT INFORMATION
  Report Type: 
  Country: None (occurrence: None)
  Receive Date: 20100226
  Receipt Date: 20091204
  Transmission Date: 20100710
  Serious: Yes (Disabling)
  Sender: FDA-Public Use
  Company Number: 217528USA

PATIENT
  Sex: 0

DRUGS (1)
  1. ADDERALL 10 [Suspect]
     Dosage: (30 MG), ORAL
     Route: 048
     Dates: start: 20090401

REACTIONS (1)
  - DEPRESSION [None]
